FAERS Safety Report 19762957 (Version 1)
Quarter: 2021Q3

REPORT INFORMATION
  Report Type: Spontaneous
  Country: CA (occurrence: CA)
  Receive Date: 20210830
  Receipt Date: 20210830
  Transmission Date: 20211014
  Serious: Yes (Hospitalization)
  Sender: FDA-Public Use
  Company Number: CA-TEVA-2021-CA-1946353

PATIENT
  Age: 68 Year
  Sex: Male

DRUGS (12)
  1. FERROUS GLUCONATE [Concomitant]
     Active Substance: FERROUS GLUCONATE
  2. DIGOXIN. [Concomitant]
     Active Substance: DIGOXIN
  3. MELATONIN [Concomitant]
     Active Substance: MELATONIN
  4. METFORMIN [Concomitant]
     Active Substance: METFORMIN HYDROCHLORIDE
  5. BISOPROLOL [Concomitant]
     Active Substance: BISOPROLOL
  6. K [POTASSIUM] [Concomitant]
     Active Substance: POTASSIUM
  7. ROSUVASTATIN. [Concomitant]
     Active Substance: ROSUVASTATIN
  8. PANTOPRAZOLE [Concomitant]
     Active Substance: PANTOPRAZOLE
  9. APIXABAN [Concomitant]
     Active Substance: APIXABAN
  10. ERGOCALCIFEROL. [Concomitant]
     Active Substance: ERGOCALCIFEROL
  11. SILDENAFIL CITRATE. [Suspect]
     Active Substance: SILDENAFIL CITRATE
     Indication: PULMONARY ARTERIAL HYPERTENSION
     Dosage: 60 MILLIGRAM DAILY;
     Route: 065
  12. FUROSEMIDE. [Concomitant]
     Active Substance: FUROSEMIDE

REACTIONS (5)
  - Drug ineffective [Unknown]
  - Weight increased [Unknown]
  - Fluid retention [Unknown]
  - Dyspnoea [Unknown]
  - Loss of consciousness [Unknown]
